FAERS Safety Report 21437211 (Version 1)
Quarter: 2022Q4

REPORT INFORMATION
  Report Type: Spontaneous
  Country: US (occurrence: None)
  Receive Date: 20221007
  Receipt Date: 20221007
  Transmission Date: 20230113
  Serious: Yes (Other)
  Sender: FDA-Public Use
  Company Number: None

PATIENT
  Sex: Male

DRUGS (2)
  1. MYCOPHENOLIC ACID [Suspect]
     Active Substance: MYCOPHENOLIC ACID
     Indication: Myocarditis
     Dosage: FREQUENCY : TWICE A DAY;?
     Route: 048
     Dates: start: 20220503
  2. MYCOPHENOLIC ACID [Suspect]
     Active Substance: MYCOPHENOLIC ACID
     Indication: Cardiac sarcoidosis

REACTIONS (4)
  - Heart rate irregular [None]
  - Pacemaker generated rhythm [None]
  - Fatigue [None]
  - Therapy interrupted [None]
